FAERS Safety Report 19086793 (Version 1)
Quarter: 2021Q2

REPORT INFORMATION
  Report Type: Spontaneous
  Country: US (occurrence: US)
  Receive Date: 20210402
  Receipt Date: 20210402
  Transmission Date: 20210717
  Serious: Yes (Hospitalization, Other)
  Sender: FDA-Public Use
  Company Number: US-PURACAP-US-2021EPCLIT00352

PATIENT
  Age: 18 Year
  Sex: Female

DRUGS (9)
  1. IBUPROFEN. [Suspect]
     Active Substance: IBUPROFEN
     Indication: HEADACHE
     Route: 065
  2. NEOMYCIN/POLYMYXIN B/DEXAMETHASONE [Suspect]
     Active Substance: DEXAMETHASONE\NEOMYCIN\POLYMYXIN B
     Route: 061
  3. DIFLUPREDNATE [Suspect]
     Active Substance: DIFLUPREDNATE
     Route: 065
  4. CYCLOSPORINE. [Interacting]
     Active Substance: CYCLOSPORINE
     Indication: STEVENS-JOHNSON SYNDROME
     Route: 048
  5. NEOMYCIN/POLYMYXIN B/DEXAMETHASONE [Suspect]
     Active Substance: DEXAMETHASONE\NEOMYCIN\POLYMYXIN B
     Route: 061
  6. VITAMIN E [Interacting]
     Active Substance: .ALPHA.-TOCOPHEROL
     Indication: STEVENS-JOHNSON SYNDROME
     Route: 061
  7. MOXIFLOXACIN. [Suspect]
     Active Substance: MOXIFLOXACIN
     Route: 065
  8. AQUAPHOR HEALING [Interacting]
     Active Substance: PETROLATUM
     Indication: STEVENS-JOHNSON SYNDROME
     Route: 061
  9. CARBOXYMETHYLCELLULOSE [Suspect]
     Active Substance: CARBOXYMETHYLCELLULOSE
     Route: 065

REACTIONS (1)
  - Stevens-Johnson syndrome [Recovering/Resolving]
